FAERS Safety Report 24232857 (Version 1)
Quarter: 2024Q3

REPORT INFORMATION
  Report Type: Spontaneous
  Country: DE (occurrence: DE)
  Receive Date: 20240821
  Receipt Date: 20240821
  Transmission Date: 20241017
  Serious: Yes (Hospitalization, Other)
  Sender: GLAND PHARMA
  Company Number: DE-GLANDPHARMA-DE-2024GLNLIT00630

PATIENT
  Age: 56 Year

DRUGS (4)
  1. CARBOPLATIN [Suspect]
     Active Substance: CARBOPLATIN
     Indication: Lung adenocarcinoma stage IV
     Route: 065
  2. PEMBROLIZUMAB [Suspect]
     Active Substance: PEMBROLIZUMAB
     Indication: Lung adenocarcinoma stage IV
     Route: 065
  3. PEMETREXED [Concomitant]
     Active Substance: PEMETREXED
     Route: 065
  4. SOTORASIB [Concomitant]
     Active Substance: SOTORASIB
     Route: 065

REACTIONS (3)
  - Pneumonitis [Recovered/Resolved]
  - Respiratory failure [Recovered/Resolved]
  - Product use in unapproved indication [Unknown]
